FAERS Safety Report 4320258-7 (Version None)
Quarter: 2004Q1

REPORT INFORMATION
  Report Type: 
  Country: None (occurrence: None)
  Receive Date: 20040317
  Receipt Date: 20040304
  Transmission Date: 20041129
  Serious: Yes (Death)
  Sender: FDA-Public Use
  Company Number: 2004015127

PATIENT
  Sex: Male

DRUGS (2)
  1. VFEND [Suspect]
     Indication: ASPERGILLOSIS
     Dosage: SEE IMAGE
     Route: 042
  2. OPIOIDS [Suspect]

REACTIONS (3)
  - DRUG LEVEL INCREASED [None]
  - RENAL FAILURE ACUTE [None]
  - SEPSIS [None]
